FAERS Safety Report 23539184 (Version 1)
Quarter: 2024Q1

REPORT INFORMATION
  Report Type: Report from Study
  Country: CA (occurrence: CA)
  Receive Date: 20240219
  Receipt Date: 20240219
  Transmission Date: 20240410
  Serious: Yes (Death)
  Sender: FDA-Public Use
  Company Number: CA-BAYER-2024A011280

PATIENT
  Sex: Female

DRUGS (7)
  1. EYLEA [Suspect]
     Active Substance: AFLIBERCEPT
     Indication: Age-related macular degeneration
     Dosage: TOTAL 35 OD + 36 OS, FREQUENCY OF INJECTIONS: 16 WEEKS, SOLUTION FOR INJECTION, 40MG/ML
     Dates: start: 20161109, end: 20161109
  2. EYLEA [Suspect]
     Active Substance: AFLIBERCEPT
     Dosage: TOTAL 35 OD + 36 OS, FREQUENCY OF INJECTIONS: 16 WEEKS, LEFT EYE, SOLUTION FOR INJECTION, 40MG/ML
     Dates: start: 20231004, end: 20231004
  3. FRAGMIN [Concomitant]
     Active Substance: DALTEPARIN SODIUM
     Indication: Product used for unknown indication
     Dosage: UNK
  4. ROSUVASTATIN [Concomitant]
     Active Substance: ROSUVASTATIN
     Indication: Product used for unknown indication
     Dosage: UNK
  5. METFORMIN [Concomitant]
     Active Substance: METFORMIN HYDROCHLORIDE
     Indication: Product used for unknown indication
     Dosage: UNK
  6. SYNTHROID [Concomitant]
     Active Substance: LEVOTHYROXINE SODIUM
     Indication: Product used for unknown indication
     Dosage: UNK
  7. ESCITALOPRAM [Concomitant]
     Active Substance: ESCITALOPRAM OXALATE
     Indication: Product used for unknown indication
     Dosage: UNK

REACTIONS (1)
  - Death [Fatal]
